FAERS Safety Report 6364432-7 (Version None)
Quarter: 2009Q3

REPORT INFORMATION
  Report Type: 
  Country: None (occurrence: None)
  Receive Date: 20090919
  Receipt Date: 20090721
  Transmission Date: 20100115
  Serious: No
  Sender: FDA-Public Use
  Company Number: US-ABBOTT-09P-163-0586850-00

PATIENT
  Sex: Male

DRUGS (1)
  1. HUMIRA [Suspect]
     Indication: PSORIATIC ARTHROPATHY
     Dates: start: 20090101, end: 20090401

REACTIONS (4)
  - ARTHRALGIA [None]
  - CONJUNCTIVITIS INFECTIVE [None]
  - HERPES ZOSTER [None]
  - JOINT SWELLING [None]
